FAERS Safety Report 19856067 (Version 1)
Quarter: 2021Q3

REPORT INFORMATION
  Report Type: Spontaneous
  Country: US (occurrence: US)
  Receive Date: 20210920
  Receipt Date: 20210920
  Transmission Date: 20211014
  Serious: Yes (Other)
  Sender: FDA-Public Use
  Company Number: None

PATIENT
  Age: 5 Year
  Sex: Male
  Weight: 17.9 kg

DRUGS (1)
  1. ?ALBUTEROL SULFATE INHALATION SOL, 2.5 MG NEPHRON PHARMACEUTICALS CORP [Suspect]
     Active Substance: ALBUTEROL SULFATE
     Indication: ACUTE LYMPHOCYTIC LEUKAEMIA
     Dosage: ?          OTHER FREQUENCY:ONCE;?
     Route: 042
     Dates: start: 20210601, end: 20210601

REACTIONS (7)
  - Mental status changes [None]
  - Neurotoxicity [None]
  - Pyrexia [None]
  - Fluid overload [None]
  - Confusional state [None]
  - Cytokine release syndrome [None]
  - Hypotension [None]

NARRATIVE: CASE EVENT DATE: 20210601
